FAERS Safety Report 9834173 (Version 1)
Quarter: 2014Q1

REPORT INFORMATION
  Report Type: Spontaneous
  Country: US (occurrence: US)
  Receive Date: 20140122
  Receipt Date: 20140122
  Transmission Date: 20141002
  Serious: No
  Sender: FDA-Public Use
  Company Number: US-BAUSCH-BL-2013-002347

PATIENT
  Age: 8 Year
  Sex: Male

DRUGS (3)
  1. ALAWAY (KETOTIFEN FUMARATE OPHTHALMIC SOLUTION) [Suspect]
     Indication: EYELID OEDEMA
     Dosage: ONE DROP INTO EACH EYE TWICE DAILY
     Route: 047
     Dates: start: 20130417
  2. ALAWAY (KETOTIFEN FUMARATE OPHTHALMIC SOLUTION) [Suspect]
     Indication: OFF LABEL USE
  3. LORATADINE [Concomitant]
     Indication: SEASONAL ALLERGY

REACTIONS (2)
  - Rash erythematous [Not Recovered/Not Resolved]
  - Rash pruritic [Not Recovered/Not Resolved]
